FAERS Safety Report 9136845 (Version 3)
Quarter: 2013Q4

REPORT INFORMATION
  Report Type: Spontaneous
  Country: FR (occurrence: FR)
  Receive Date: 20130304
  Receipt Date: 20131227
  Transmission Date: 20140711
  Serious: Yes (Life-Threatening)
  Sender: FDA-Public Use
  Company Number: FR-WATSON-2013-03034

PATIENT
  Age: 72 Year
  Sex: Female

DRUGS (12)
  1. METFORMIN HYDROCHLORIDE [Suspect]
     Indication: DIABETES MELLITUS
     Dosage: 1 DF, TID
     Route: 048
     Dates: start: 20120417, end: 20120420
  2. LOVENOX [Suspect]
     Indication: PRODUCT USED FOR UNKNOWN INDICATION
     Dosage: 1 DF, DAILY
     Route: 058
     Dates: start: 20120415, end: 20120419
  3. PROFENID [Suspect]
     Indication: PRODUCT USED FOR UNKNOWN INDICATION
     Dosage: UNK, UNKNOWN
     Route: 048
     Dates: start: 20120418, end: 20120419
  4. COVERSYL                           /00790702/ [Concomitant]
     Indication: PRODUCT USED FOR UNKNOWN INDICATION
     Dosage: 1 DF, DAILY (10 MG FILM-COATED TABLET)
     Route: 048
     Dates: end: 20120420
  5. GLUCOR [Concomitant]
     Indication: DIABETES MELLITUS
     Dosage: 1 DF, BID (100 MG SCORED TABLET)
     Route: 048
  6. NOVORAPID [Concomitant]
     Indication: DIABETES MELLITUS
     Dosage: 8 IU, TID
     Route: 057
     Dates: start: 20120416, end: 20120420
  7. LANTUS [Concomitant]
     Indication: DIABETES MELLITUS
     Dosage: 24 ?G/KG, DAILY
     Route: 058
     Dates: start: 20120416, end: 20120419
  8. DAFALGAN [Concomitant]
     Indication: PRODUCT USED FOR UNKNOWN INDICATION
     Dosage: 1 DF, TID (1 G FILM-COATED TABLET)
     Route: 048
     Dates: start: 20120418
  9. INEXIUM                            /01479302/ [Concomitant]
     Indication: PRODUCT USED FOR UNKNOWN INDICATION
     Dosage: 40 MG, DAILY
     Route: 048
     Dates: start: 20120417, end: 20120420
  10. XALACOM [Concomitant]
     Indication: PRODUCT USED FOR UNKNOWN INDICATION
     Dosage: 1 GTT, DAILY
     Route: 047
  11. ALDALIX [Concomitant]
     Indication: PRODUCT USED FOR UNKNOWN INDICATION
     Dosage: 1 DF, DAILY
     Route: 047
     Dates: end: 20120424
  12. SKENAN [Concomitant]
     Indication: PRODUCT USED FOR UNKNOWN INDICATION

REACTIONS (3)
  - Rash [Recovered/Resolved]
  - Angioedema [Recovered/Resolved]
  - Respiratory distress [Recovered/Resolved]
